FAERS Safety Report 5774899-0 (Version None)
Quarter: 2008Q2

REPORT INFORMATION
  Report Type: 
  Country: None (occurrence: None)
  Receive Date: 20080617
  Receipt Date: 20080610
  Transmission Date: 20081010
  Serious: Yes (Other)
  Sender: FDA-Public Use
  Company Number: US-BAYER-200822970NA

PATIENT
  Age: 66 Year
  Sex: Female

DRUGS (8)
  1. AVELOX [Suspect]
     Indication: SINUSITIS
     Dosage: TOTAL DAILY DOSE: 400 MG  UNIT DOSE: 400 MG
     Route: 048
     Dates: start: 20080404
  2. DILACOR XR [Concomitant]
  3. CORGARD [Concomitant]
  4. CELEBREX [Concomitant]
  5. DITROPAN [Concomitant]
  6. NEXIUM [Concomitant]
  7. TOPAMAX [Concomitant]
  8. ZOLOFT [Concomitant]

REACTIONS (2)
  - DYSARTHRIA [None]
  - LOSS OF CONSCIOUSNESS [None]
